FAERS Safety Report 14284540 (Version 1)
Quarter: 2017Q4

REPORT INFORMATION
  Report Type: Spontaneous
  Country: US (occurrence: US)
  Receive Date: 20171214
  Receipt Date: 20171214
  Transmission Date: 20180321
  Serious: No
  Sender: FDA-Public Use
  Company Number: US-LUPIN PHARMACEUTICALS INC.-2017-04762

PATIENT
  Sex: Female

DRUGS (2)
  1. LOVASTATIN TABLETS [Suspect]
     Active Substance: LOVASTATIN
     Dosage: 20 MG, UNK
     Route: 065
     Dates: start: 20170601
  2. LOVASTATIN TABLETS [Suspect]
     Active Substance: LOVASTATIN
     Indication: PRODUCT USED FOR UNKNOWN INDICATION
     Dosage: 10 MG, UNK
     Route: 065

REACTIONS (2)
  - Arthralgia [Unknown]
  - Myalgia [Unknown]
